FAERS Safety Report 16539417 (Version 1)
Quarter: 2019Q3

REPORT INFORMATION
  Report Type: Spontaneous
  Country: US (occurrence: US)
  Receive Date: 20190708
  Receipt Date: 20190708
  Transmission Date: 20191004
  Serious: No
  Sender: FDA-Public Use
  Company Number: US-MYLANLABS-2019M1058500

PATIENT
  Age: 69 Year
  Sex: Male
  Weight: 120 kg

DRUGS (1)
  1. EMSAM [Suspect]
     Active Substance: SELEGILINE
     Indication: PRODUCT USED FOR UNKNOWN INDICATION
     Dosage: 12 MILLIGRAM
     Route: 062
     Dates: start: 2006

REACTIONS (3)
  - Product adhesion issue [Unknown]
  - Application site erythema [Recovered/Resolved]
  - Abdominal discomfort [Not Recovered/Not Resolved]
